FAERS Safety Report 4867855-8 (Version None)
Quarter: 2005Q4

REPORT INFORMATION
  Report Type: 
  Country: None (occurrence: None)
  Receive Date: 20051227
  Receipt Date: 20051215
  Transmission Date: 20060501
  Serious: Yes (Hospitalization)
  Sender: FDA-Public Use
  Company Number: FR-JNJFOC-20050905899

PATIENT
  Age: 57 Year
  Sex: Male
  Weight: 55 kg

DRUGS (12)
  1. RISPERDAL [Suspect]
     Indication: AGITATION
     Dosage: 1 MG,  IN 1 DAY, ORAL
     Route: 048
     Dates: start: 20050922, end: 20050923
  2. RISPERDAL [Suspect]
     Indication: PSYCHOTIC DISORDER
     Dosage: 1 MG,  IN 1 DAY, ORAL
     Route: 048
     Dates: start: 20050922, end: 20050923
  3. ATARAX [Concomitant]
  4. CITALOPRAM HYDROBROMIDE [Concomitant]
  5. FORLAX (MACROGOL) [Concomitant]
  6. TRANXENE [Concomitant]
  7. TEGRETOL [Concomitant]
  8. DIANTALVIC (APOREX) CAPSULES [Concomitant]
  9. LEVOTHYROXINE SODIUM [Concomitant]
  10. AUGMENTIN '125' [Concomitant]
  11. TAMSULOSIN HCL [Concomitant]
  12. MEPRONIZINE (MEPRONIZINE) [Concomitant]

REACTIONS (7)
  - BRONCHITIS [None]
  - HYPERTENSION [None]
  - HYPOTONIA [None]
  - LOSS OF CONSCIOUSNESS [None]
  - MALAISE [None]
  - PALLOR [None]
  - RESPIRATORY DISTRESS [None]
